FAERS Safety Report 18132298 (Version 2)
Quarter: 2020Q4

REPORT INFORMATION
  Report Type: Spontaneous
  Country: IT (occurrence: IT)
  Receive Date: 20200811
  Receipt Date: 20201230
  Transmission Date: 20210113
  Serious: Yes (Death, Life-Threatening, Other)
  Sender: FDA-Public Use
  Company Number: IT-AMGEN-ITASP2020127483

PATIENT

DRUGS (1)
  1. BLINATUMOMAB [Suspect]
     Active Substance: BLINATUMOMAB
     Indication: B PRECURSOR TYPE ACUTE LEUKAEMIA
     Dosage: UNK
     Route: 065

REACTIONS (9)
  - Febrile neutropenia [Unknown]
  - Hepatic failure [Unknown]
  - Pseudomonal sepsis [Unknown]
  - Fungal infection [Unknown]
  - Pneumonia [Unknown]
  - Venoocclusive disease [Fatal]
  - Thrombocytopenia [Unknown]
  - Constipation [Unknown]
  - Encephalopathy [Unknown]
